FAERS Safety Report 8871464 (Version 1)
Quarter: 2012Q4

REPORT INFORMATION
  Report Type: 
  Country: US (occurrence: US)
  Receive Date: 20121026
  Receipt Date: 20121026
  Transmission Date: 20130627
  Serious: No
  Sender: FDA-Public Use
  Company Number: US-AMGEN-USASP2012048076

PATIENT
  Sex: Male

DRUGS (3)
  1. ENBREL [Suspect]
     Indication: PSORIATIC ARTHROPATHY
     Dosage: 50 mg, qwk
     Dates: start: 20110101
  2. METHOTREXATE [Concomitant]
     Dosage: 1 mg, qwk
  3. HUMIRA [Concomitant]
     Dosage: UNK

REACTIONS (2)
  - Drug effect incomplete [Recovered/Resolved]
  - Adverse event [Recovered/Resolved]
